FAERS Safety Report 15249781 (Version 2)
Quarter: 2018Q3

REPORT INFORMATION
  Report Type: Spontaneous
  Country: US (occurrence: US)
  Receive Date: 20180807
  Receipt Date: 20180911
  Transmission Date: 20181010
  Serious: No
  Sender: FDA-Public Use
  Company Number: US-BRISTOL-MYERS SQUIBB COMPANY-BMS-2018-068930

PATIENT
  Age: 73 Year
  Sex: Female

DRUGS (3)
  1. ELIQUIS [Suspect]
     Active Substance: APIXABAN
     Indication: CEREBROVASCULAR ACCIDENT PROPHYLAXIS
     Dosage: 5 MG, BID
     Route: 048
     Dates: start: 20180604, end: 20180831
  2. VITAMINS                           /00067501/ [Concomitant]
     Active Substance: VITAMINS
     Indication: PRODUCT USED FOR UNKNOWN INDICATION
     Route: 065
  3. ATENOLOL. [Suspect]
     Active Substance: ATENOLOL
     Indication: ATRIAL FIBRILLATION
     Dosage: 12.5 MG, BID
     Route: 048
     Dates: start: 20150320

REACTIONS (11)
  - Hypoaesthesia [Unknown]
  - Feeling abnormal [Unknown]
  - Fatigue [Unknown]
  - Irritability [Unknown]
  - Muscle spasms [Unknown]
  - Muscular weakness [Recovered/Resolved]
  - Balance disorder [Unknown]
  - Pain in extremity [Unknown]
  - Contusion [Unknown]
  - Skin discolouration [Unknown]
  - Cardiovascular disorder [Unknown]

NARRATIVE: CASE EVENT DATE: 20180710
